FAERS Safety Report 24365265 (Version 1)
Quarter: 2024Q3

REPORT INFORMATION
  Report Type: Report from Study
  Country: US (occurrence: US)
  Receive Date: 20240926
  Receipt Date: 20240926
  Transmission Date: 20241017
  Serious: Yes (Other)
  Sender: GILEAD
  Company Number: US-GILEAD-2024-0684308

PATIENT
  Sex: Female

DRUGS (4)
  1. AMBRISENTAN [Suspect]
     Active Substance: AMBRISENTAN
     Indication: Pulmonary hypertension
     Dosage: 5 MG, QD
     Route: 065
     Dates: start: 20240328
  2. AMBRISENTAN [Suspect]
     Active Substance: AMBRISENTAN
     Indication: Pulmonary arterial hypertension
  3. ADEMPAS [Concomitant]
     Active Substance: RIOCIGUAT
  4. UPTRAVI [Concomitant]
     Active Substance: SELEXIPAG

REACTIONS (10)
  - Syncope [Recovered/Resolved]
  - Skin abrasion [Unknown]
  - Increased tendency to bruise [Unknown]
  - Bleeding time prolonged [Unknown]
  - Dizziness [Unknown]
  - Weight decreased [Unknown]
  - Behaviour disorder [Not Recovered/Not Resolved]
  - Dyspnoea [Recovering/Resolving]
  - Epistaxis [Unknown]
  - Off label use [Not Recovered/Not Resolved]
